FAERS Safety Report 4753545-9 (Version None)
Quarter: 2005Q3

REPORT INFORMATION
  Report Type: 
  Country: None (occurrence: None)
  Receive Date: 20050826
  Receipt Date: 20050817
  Transmission Date: 20060218
  Serious: Yes (Other)
  Sender: FDA-Public Use
  Company Number: 2005UW12285

PATIENT
  Age: 68 Year
  Sex: Female
  Weight: 95.3 kg

DRUGS (4)
  1. CRESTOR [Suspect]
     Indication: BLOOD CHOLESTEROL INCREASED
     Route: 048
     Dates: start: 20050801
  2. ACTOS [Concomitant]
  3. NOVOLIN 70/30 [Concomitant]
  4. LEVOXYL [Concomitant]

REACTIONS (7)
  - DIARRHOEA [None]
  - DIZZINESS [None]
  - FATIGUE [None]
  - FLATULENCE [None]
  - GAIT DISTURBANCE [None]
  - LYMPHOMA [None]
  - SOMNOLENCE [None]
